FAERS Safety Report 10040234 (Version 2)
Quarter: 2014Q2

REPORT INFORMATION
  Report Type: Report from Study
  Country: FR (occurrence: FR)
  Receive Date: 20140327
  Receipt Date: 20140423
  Transmission Date: 20141212
  Serious: Yes (Hospitalization)
  Sender: FDA-Public Use
  Company Number: FR-AMGEN-FRACT2014020416

PATIENT
  Age: 47 Year
  Sex: Male
  Weight: 62 kg

DRUGS (9)
  1. PANITUMUMAB [Suspect]
     Indication: TRANSITIONAL CELL CARCINOMA
     Dosage: 408 MG, UNK
     Route: 042
     Dates: start: 20140211
  2. METHOTREXATE [Concomitant]
     Indication: TRANSITIONAL CELL CARCINOMA
     Dosage: 55 MG, UNK
     Route: 042
     Dates: start: 20140210
  3. VINBLASTINE [Concomitant]
     Indication: TRANSITIONAL CELL CARCINOMA
     Dosage: 5.5 MG, UNK
     Route: 042
     Dates: start: 20140211
  4. DOXORUBICIN [Concomitant]
     Indication: TRANSITIONAL CELL CARCINOMA
     Dosage: 55 MG, UNK
     Route: 042
     Dates: start: 20140211
  5. CISPLATIN [Concomitant]
     Indication: TRANSITIONAL CELL CARCINOMA
     Dosage: 127 MG, UNK
     Route: 042
     Dates: start: 20140211
  6. SKENAN [Concomitant]
     Dosage: UNK
     Route: 048
     Dates: start: 2014
  7. INNOHEP [Concomitant]
     Indication: PROPHYLAXIS
     Dosage: UNK
     Route: 058
     Dates: start: 2014
  8. QUTENZA [Concomitant]
     Dosage: UNK
     Route: 048
  9. LAROXYL [Concomitant]
     Dosage: UNK
     Route: 048

REACTIONS (2)
  - Vomiting [Recovered/Resolved]
  - Decreased appetite [Recovered/Resolved]
